FAERS Safety Report 6903833-2 (Version None)
Quarter: 2010Q3

REPORT INFORMATION
  Report Type: 
  Country: None (occurrence: None)
  Receive Date: 20100804
  Receipt Date: 20090108
  Transmission Date: 20110219
  Serious: No
  Sender: FDA-Public Use
  Company Number: US-PFIZER INC-2008098162

PATIENT
  Sex: Female
  Weight: 52.3 kg

DRUGS (2)
  1. LYRICA [Suspect]
     Dosage: 75 MG, 2X/DAY
     Route: 048
     Dates: start: 20081011, end: 20081115
  2. VITAMIN TAB [Concomitant]
     Dosage: UNK

REACTIONS (10)
  - ANXIETY [None]
  - BALANCE DISORDER [None]
  - DRUG INEFFECTIVE [None]
  - FEELING DRUNK [None]
  - HEADACHE [None]
  - INSOMNIA [None]
  - NERVOUSNESS [None]
  - PALPITATIONS [None]
  - SEDATION [None]
  - THINKING ABNORMAL [None]
